FAERS Safety Report 4357709-8 (Version None)
Quarter: 2004Q2

REPORT INFORMATION
  Report Type: 
  Country: None (occurrence: None)
  Receive Date: 20040513
  Receipt Date: 20040223
  Transmission Date: 20050107
  Serious: Yes (Hospitalization)
  Sender: FDA-Public Use
  Company Number: US-GLAXOSMITHKLINE-A0499424A

PATIENT
  Age: 60 Year
  Sex: Female

DRUGS (4)
  1. PAXIL [Suspect]
     Indication: ANXIETY DISORDER
     Dosage: 15MG PER DAY
     Route: 048
     Dates: end: 20040223
  2. COUMADIN [Concomitant]
     Indication: ATRIAL FIBRILLATION
     Route: 048
  3. TOPROL-XL [Concomitant]
     Indication: HYPERTENSION
     Dosage: 50MG PER DAY
     Route: 048
  4. DIGOXIN [Concomitant]
     Route: 048

REACTIONS (3)
  - AMNESIA [None]
  - HAEMORRHAGIC STROKE [None]
  - VISUAL DISTURBANCE [None]
